FAERS Safety Report 25890571 (Version 1)
Quarter: 2025Q4

REPORT INFORMATION
  Report Type: Spontaneous
  Country: EU (occurrence: EU)
  Receive Date: 20251007
  Receipt Date: 20251007
  Transmission Date: 20260117
  Serious: Yes (Other)
  Sender: ACCORD
  Company Number: EU-Accord-507052

PATIENT
  Age: 10 Year
  Sex: Male

DRUGS (4)
  1. BUSULFAN [Suspect]
     Active Substance: BUSULFAN
     Indication: Bone marrow conditioning regimen
  2. FLUDARABINE PHOSPHATE [Suspect]
     Active Substance: FLUDARABINE PHOSPHATE
     Indication: Bone marrow conditioning regimen
  3. CYCLOPHOSPHAMIDE [Suspect]
     Active Substance: CYCLOPHOSPHAMIDE
     Indication: Bone marrow conditioning regimen
  4. THIOTEPA [Suspect]
     Active Substance: THIOTEPA
     Indication: Bone marrow conditioning regimen

REACTIONS (4)
  - Meningitis cryptococcal [Recovered/Resolved]
  - Cytomegalovirus infection reactivation [Recovered/Resolved]
  - Clostridium difficile infection [Recovered/Resolved]
  - Mucosal inflammation [Recovered/Resolved]
